FAERS Safety Report 23915041 (Version 2)
Quarter: 2025Q2

REPORT INFORMATION
  Report Type: Spontaneous
  Country: ZA (occurrence: ZA)
  Receive Date: 20240529
  Receipt Date: 20250521
  Transmission Date: 20250716
  Serious: Yes (Other)
  Sender: PFIZER
  Company Number: ZA-PFIZER INC-2017392343

PATIENT
  Age: 31 Year
  Sex: Female
  Weight: 86 kg

DRUGS (7)
  1. METHOTREXATE SODIUM [Suspect]
     Active Substance: METHOTREXATE SODIUM
     Indication: Psoriatic arthropathy
     Dosage: 25 MG, WEEKLY
     Dates: start: 2006
  2. METHOTREXATE SODIUM [Suspect]
     Active Substance: METHOTREXATE SODIUM
     Indication: Psoriasis
  3. CHLOROQUINE [Suspect]
     Active Substance: CHLOROQUINE
     Indication: Psoriatic arthropathy
     Dosage: 200 MG, DAILY
     Dates: start: 201311
  4. CHLOROQUINE [Suspect]
     Active Substance: CHLOROQUINE
     Indication: Psoriasis
  5. ARAVA [Suspect]
     Active Substance: LEFLUNOMIDE
     Indication: Psoriatic arthropathy
     Dosage: 20 MG, DAILY
     Dates: start: 201311
  6. ARAVA [Suspect]
     Active Substance: LEFLUNOMIDE
     Indication: Psoriasis
  7. ENBREL [Concomitant]
     Active Substance: ETANERCEPT
     Indication: Rheumatoid arthritis
     Dosage: 50 MG, WEEKLY
     Route: 058

REACTIONS (4)
  - Joint surgery [Unknown]
  - Haemoglobin decreased [Recovered/Resolved]
  - Psoriatic arthropathy [Unknown]
  - White blood cell count increased [Recovered/Resolved]

NARRATIVE: CASE EVENT DATE: 20140401
